FAERS Safety Report 18755963 (Version 1)
Quarter: 2021Q1

REPORT INFORMATION
  Report Type: Spontaneous
  Country: US (occurrence: US)
  Receive Date: 20210116
  Receipt Date: 20210116
  Transmission Date: 20210419
  Serious: No
  Sender: FDA-Public Use
  Company Number: None

PATIENT
  Age: 61 Year
  Sex: Female
  Weight: 63 kg

DRUGS (2)
  1. MULTIPLE VITAMIN [Concomitant]
     Active Substance: VITAMINS
  2. CERAVE AM FACIAL MOISTURIZING BROAD SPECTRUM SPF 30 SUNSCREEN [Suspect]
     Active Substance: HOMOSALATE\MERADIMATE\OCTINOXATE\OCTOCRYLENE\ZINC OXIDE
     Indication: DRY SKIN PROPHYLAXIS
     Dosage: ?          QUANTITY:1 APPLICATION;?
     Route: 061
     Dates: start: 20210113, end: 20210116

REACTIONS (10)
  - Eye oedema [None]
  - Suspected product contamination [None]
  - Rash [None]
  - Swelling [None]
  - Erythema [None]
  - Periorbital swelling [None]
  - Swelling face [None]
  - Product physical consistency issue [None]
  - Skin irritation [None]
  - Ocular hyperaemia [None]

NARRATIVE: CASE EVENT DATE: 20210113
